FAERS Safety Report 7357245-0 (Version None)
Quarter: 2011Q1

REPORT INFORMATION
  Report Type: 
  Country: None (occurrence: None)
  Receive Date: 20110308
  Receipt Date: 20110223
  Transmission Date: 20110831
  Serious: No
  Sender: FDA-Public Use
  Company Number: PHHY2011IT09425

PATIENT
  Age: 28 Year
  Sex: Female

DRUGS (2)
  1. SIRDALUD (TIZANIDINE HYDROCHLORIDE) UNKNOWN, 4 MG [Suspect]
     Dosage: 4 MG, QD, ORAL
     Route: 048
     Dates: start: 20101228, end: 20101230
  2. TORA-DOL (KETOROLAC TROMETHAMINE)DROPS, 20MG/ML [Suspect]
     Indication: BACK PAIN
     Dosage: ORAL
     Route: 048
     Dates: start: 20101228, end: 20101230

REACTIONS (1)
  - EYELID OEDEMA [None]
